FAERS Safety Report 4780251-7 (Version None)
Quarter: 2005Q3

REPORT INFORMATION
  Report Type: 
  Country: None (occurrence: None)
  Receive Date: 20050926
  Receipt Date: 20050914
  Transmission Date: 20060218
  Serious: Yes (Death)
  Sender: FDA-Public Use
  Company Number: MK200509-0191-1

PATIENT
  Age: 33 Year
  Sex: Female

DRUGS (3)
  1. MD-76R [Suspect]
     Indication: COMPUTERISED TOMOGRAM THORAX
     Dosage: ONE TIME, IV
     Route: 042
  2. PREDNISONE [Concomitant]
  3. PYRIDOSTIGMINE BROMIDE [Concomitant]

REACTIONS (4)
  - BRADYCARDIA [None]
  - CONTRAST MEDIA REACTION [None]
  - PULMONARY EMBOLISM [None]
  - RESPIRATORY ARREST [None]
